FAERS Safety Report 19590793 (Version 1)
Quarter: 2021Q3

REPORT INFORMATION
  Report Type: Spontaneous
  Country: US (occurrence: US)
  Receive Date: 20210721
  Receipt Date: 20210721
  Transmission Date: 20211014
  Serious: Yes (Other)
  Sender: FDA-Public Use
  Company Number: NVSC2021US159413

PATIENT
  Sex: Female

DRUGS (1)
  1. ENOXAPARIN SODIUM. [Suspect]
     Active Substance: ENOXAPARIN SODIUM
     Indication: PRODUCT USED FOR UNKNOWN INDICATION
     Dosage: 40 MG/0.4 ML, QD (LENGTH OF TREATMENT:3 WEEKS)
     Route: 058

REACTIONS (3)
  - Haemorrhage [Unknown]
  - Contusion [Unknown]
  - Product dose omission issue [Unknown]
